FAERS Safety Report 5145229-2 (Version None)
Quarter: 2006Q4

REPORT INFORMATION
  Report Type: 
  Country: None (occurrence: None)
  Receive Date: 20061107
  Receipt Date: 20061023
  Transmission Date: 20070319
  Serious: Yes (Hospitalization)
  Sender: FDA-Public Use
  Company Number: US-ROCHE-468627

PATIENT
  Age: 44 Year
  Sex: Female
  Weight: 67.1 kg

DRUGS (7)
  1. PEGASYS [Suspect]
     Indication: HEPATITIS C
     Dosage: STRENGTH AND FORMULATION REPORTED AS 180 MCG/0.5 ML.
     Route: 058
     Dates: start: 20060607
  2. RIBAVIRIN [Suspect]
     Indication: HEPATITIS C
     Dosage: WAS STOPPED WHILE SHE WAS IN THE HOSPITAL.
     Route: 048
     Dates: start: 20060607
  3. RIBAVIRIN [Suspect]
     Route: 048
     Dates: start: 20061023
  4. ZOLOFT [Concomitant]
     Indication: DEPRESSION
     Dates: start: 20060415
  5. TRAZODONE HCL [Concomitant]
     Indication: INSOMNIA
     Dosage: INDICATION: DEPRESSION AND INSOMNIA. PATIENT TAKES 3 TABLETS AT BEDTIME.
  6. NEURONTIN [Concomitant]
     Indication: NEUROPATHY
  7. DIVALPROEX [Concomitant]
     Dosage: REPORTED AS DIVALPROEX (DEPAKOTE).

REACTIONS (4)
  - DEHYDRATION [None]
  - DIVERTICULUM [None]
  - GASTROINTESTINAL INFECTION [None]
  - SEPSIS [None]
